FAERS Safety Report 18667250 (Version 1)
Quarter: 2020Q4

REPORT INFORMATION
  Report Type: Other
  Country: NO (occurrence: NO)
  Receive Date: 20201228
  Receipt Date: 20201228
  Transmission Date: 20210114
  Serious: Yes (Life-Threatening, Hospitalization)
  Sender: FDA-Public Use
  Company Number: NO-ROCHE-2736560

PATIENT
  Age: 8 Decade
  Sex: Male

DRUGS (8)
  1. TOCILIZUMAB. [Suspect]
     Active Substance: TOCILIZUMAB
     Indication: COVID-19
     Route: 042
  2. HYDROXYCHLOROQUINE [Suspect]
     Active Substance: HYDROXYCHLOROQUINE
     Indication: COVID-19
     Route: 065
  3. GOSERELIN [Suspect]
     Active Substance: GOSERELIN
     Indication: PROSTATE CANCER
     Route: 065
  4. CIPROFLOXACIN. [Concomitant]
     Active Substance: CIPROFLOXACIN
     Indication: ANTIBIOTIC THERAPY
     Route: 065
  5. CEFOTAXIME [Concomitant]
     Active Substance: CEFOTAXIME SODIUM
     Indication: ANTIBIOTIC THERAPY
     Route: 065
  6. MEROPENEM. [Concomitant]
     Active Substance: MEROPENEM
     Indication: ANTIBIOTIC THERAPY
     Route: 065
  7. PREDNISOLONE. [Suspect]
     Active Substance: PREDNISOLONE
     Indication: BACK PAIN
     Route: 065
  8. LOPINAVIR;RITONAVIR [Suspect]
     Active Substance: LOPINAVIR\RITONAVIR
     Indication: COVID-19
     Route: 065

REACTIONS (11)
  - Respiratory alkalosis [Recovering/Resolving]
  - Generalised oedema [Recovering/Resolving]
  - Cardio-respiratory distress [Recovering/Resolving]
  - Supraventricular tachyarrhythmia [Recovering/Resolving]
  - Off label use [Unknown]
  - Acute respiratory distress syndrome [Recovering/Resolving]
  - COVID-19 [Recovering/Resolving]
  - Weight increased [Unknown]
  - Intentional product use issue [Unknown]
  - Haemophagocytic lymphohistiocytosis [Recovering/Resolving]
  - Respiratory failure [Recovering/Resolving]
